FAERS Safety Report 4779982-4 (Version None)
Quarter: 2005Q3

REPORT INFORMATION
  Report Type: 
  Country: None (occurrence: None)
  Receive Date: 20050914
  Receipt Date: 20050511
  Transmission Date: 20060218
  Serious: Yes (Hospitalization)
  Sender: FDA-Public Use
  Company Number: 163-20785-05050221

PATIENT
  Age: 69 Year
  Sex: Female

DRUGS (9)
  1. THALOMID [Suspect]
     Indication: MULTIPLE MYELOMA
     Dosage: 100 MG, DAILY, ORAL
     Route: 048
     Dates: start: 20040601
  2. PLAVIX [Concomitant]
  3. ZANTAC [Concomitant]
  4. ZYRTEC [Concomitant]
  5. DECADRON [Concomitant]
  6. SYNTHROID [Concomitant]
  7. ELAVIL [Concomitant]
  8. PROCRIT [Concomitant]
  9. AREDIA [Concomitant]

REACTIONS (3)
  - CEREBROVASCULAR ACCIDENT [None]
  - HEMIPARESIS [None]
  - SPEECH DISORDER [None]
